FAERS Safety Report 10885998 (Version 1)
Quarter: 2015Q1

REPORT INFORMATION
  Report Type: Spontaneous
  Country: US (occurrence: None)
  Receive Date: 20150227
  Receipt Date: 20150227
  Transmission Date: 20150721
  Serious: No
  Sender: FDA-Public Use
  Company Number: None

PATIENT
  Age: 69 Year
  Sex: Female

DRUGS (15)
  1. LISINOPRIL/HYDROCHLOROTHIAZ TAB [Concomitant]
  2. SIMVASTATIN. [Concomitant]
     Active Substance: SIMVASTATIN
  3. BACLOFEN. [Concomitant]
     Active Substance: BACLOFEN
  4. GABAPENTIN. [Concomitant]
     Active Substance: GABAPENTIN
  5. METOCLOPRAMIDE. [Concomitant]
     Active Substance: METOCLOPRAMIDE
  6. OMEPRAZOLE. [Concomitant]
     Active Substance: OMEPRAZOLE
  7. LACTULOSE. [Concomitant]
     Active Substance: LACTULOSE
  8. AMPYRA [Suspect]
     Active Substance: DALFAMPRIDINE
     Indication: MULTIPLE SCLEROSIS
     Route: 048
     Dates: start: 201006, end: 201411
  9. MODAFINIL. [Concomitant]
     Active Substance: MODAFINIL
  10. ALENDRONATE [Concomitant]
     Active Substance: ALENDRONATE SODIUM
  11. NITROSTAT [Concomitant]
     Active Substance: NITROGLYCERIN
  12. MELOXICAM. [Concomitant]
     Active Substance: MELOXICAM
  13. IPRATROPIUM BROMIDE 0.03% SOLN [Concomitant]
  14. LIDEX CREAM [Concomitant]
  15. LATANOPROST OPTHL SOL 0.005% [Concomitant]

REACTIONS (1)
  - Drug ineffective [None]

NARRATIVE: CASE EVENT DATE: 20150226
